FAERS Safety Report 24012430 (Version 1)
Quarter: 2024Q2

REPORT INFORMATION
  Report Type: Report from Study
  Country: CH (occurrence: CH)
  Receive Date: 20240625
  Receipt Date: 20240625
  Transmission Date: 20240716
  Serious: Yes (Death)
  Sender: FDA-Public Use
  Company Number: CH-ABBVIE-5815134

PATIENT
  Age: 49 Year
  Sex: Female

DRUGS (4)
  1. CARBIDOPA\LEVODOPA [Suspect]
     Active Substance: CARBIDOPA\LEVODOPA
     Indication: Parkinson^s disease
     Dosage: MD: 4.0ML, CRD: 3.6ML/H, ED: 1.00 ML?FREQUENCY: 16H THERAPY
     Route: 050
     Dates: start: 20240611, end: 20240622
  2. CARBIDOPA\LEVODOPA [Suspect]
     Active Substance: CARBIDOPA\LEVODOPA
     Dosage: MD: 1.0ML, CRD: 2.9ML/H, ED: 1.00 ML?FREQUENCY: 16H THERAPY
     Route: 050
     Dates: start: 20240528, end: 20240610
  3. CARBIDOPA\LEVODOPA [Suspect]
     Active Substance: CARBIDOPA\LEVODOPA
     Dosage: MD: 2.0ML, CRD: 2.5ML/H, ED: 1.00 ML?FREQUENCY: 16H THERAPY
     Route: 050
     Dates: start: 20240522, end: 20240528
  4. CARBIDOPA\LEVODOPA [Suspect]
     Active Substance: CARBIDOPA\LEVODOPA
     Dosage: MD: 1.0ML, CRD: 3.6ML/H, ED: 1.00 ML?FREQUENCY: 16H THERAPY
     Route: 050
     Dates: start: 20240610, end: 20240611

REACTIONS (1)
  - Death [Fatal]

NARRATIVE: CASE EVENT DATE: 20240622
